FAERS Safety Report 9752515 (Version 4)
Quarter: 2014Q2

REPORT INFORMATION
  Report Type: Spontaneous
  Country: BR (occurrence: BR)
  Receive Date: 20131213
  Receipt Date: 20140619
  Transmission Date: 20141212
  Serious: Yes (Hospitalization, Other)
  Sender: FDA-Public Use
  Company Number: BR-JNJFOC-20131202807

PATIENT
  Age: 73 Year
  Sex: Male
  Weight: 93 kg

DRUGS (11)
  1. ZYTIGA [Suspect]
     Indication: PROSTATE CANCER
     Route: 048
     Dates: start: 201309
  2. ZOMETA [Concomitant]
     Indication: BONE DISORDER
     Route: 065
  3. ELIGARD [Concomitant]
     Indication: PROSTATE CANCER
     Route: 065
  4. PREDNISONE [Concomitant]
     Route: 065
  5. CALCIUM [Concomitant]
     Route: 065
  6. VITAMINS NOS [Concomitant]
     Route: 065
  7. ATENOLOL [Concomitant]
     Route: 065
  8. PURAN T4 [Concomitant]
     Indication: THYROID DISORDER
     Route: 065
  9. DOXAZOSIN [Concomitant]
     Route: 065
  10. OMEPRAZOLE [Concomitant]
     Route: 065
  11. DORFLEX [Concomitant]
     Route: 065

REACTIONS (18)
  - Mobility decreased [Not Recovered/Not Resolved]
  - Prostatic specific antigen increased [Unknown]
  - Skin discolouration [Recovering/Resolving]
  - Limb discomfort [Not Recovered/Not Resolved]
  - Formication [Not Recovered/Not Resolved]
  - Fatigue [Not Recovered/Not Resolved]
  - Burning sensation [Not Recovered/Not Resolved]
  - Increased appetite [Not Recovered/Not Resolved]
  - Blood potassium increased [Unknown]
  - Muscular weakness [Not Recovered/Not Resolved]
  - Muscle spasms [Not Recovered/Not Resolved]
  - Weight increased [Unknown]
  - Dehydration [Unknown]
  - Blood triglycerides increased [Unknown]
  - Hyperaesthesia [Recovering/Resolving]
  - Diarrhoea [Recovered/Resolved]
  - Vomiting [Recovered/Resolved]
  - Pain [Unknown]
